FAERS Safety Report 20268002 (Version 2)
Quarter: 2022Q1

REPORT INFORMATION
  Report Type: Spontaneous
  Country: CN (occurrence: CN)
  Receive Date: 20211231
  Receipt Date: 20220107
  Transmission Date: 20220423
  Serious: Yes (Hospitalization)
  Sender: FDA-Public Use
  Company Number: CN-ELI_LILLY_AND_COMPANY-CN202112011406

PATIENT
  Age: 69 Year
  Sex: Male
  Weight: 77.5 kg

DRUGS (2)
  1. HUMALOG MIX75/25 [Suspect]
     Active Substance: INSULIN LISPRO
     Indication: Type 2 diabetes mellitus
     Dosage: 15 U, EACH MORNING
     Route: 058
     Dates: start: 2001
  2. HUMALOG MIX75/25 [Suspect]
     Active Substance: INSULIN LISPRO
     Dosage: 16 U, DAILY EVENINING
     Route: 058
     Dates: start: 2001

REACTIONS (9)
  - Blood glucose increased [Unknown]
  - Diabetic complication [Unknown]
  - Diabetes mellitus [Unknown]
  - Skin lesion [Unknown]
  - Hypertension [Unknown]
  - Lipids increased [Unknown]
  - Agitation [Unknown]
  - Hypoacusis [Unknown]
  - Peripheral swelling [Unknown]
